FAERS Safety Report 13526188 (Version 2)
Quarter: 2017Q2

REPORT INFORMATION
  Report Type: Report from Study
  Country: None (occurrence: PE)
  Receive Date: 20170509
  Receipt Date: 20170513
  Transmission Date: 20170830
  Serious: Yes (Other)
  Sender: FDA-Public Use
  Company Number: PE-ABBVIE-17K-127-1963619-00

PATIENT
  Age: 16 Year
  Sex: Female
  Weight: 62 kg

DRUGS (6)
  1. CELECOXIB. [Concomitant]
     Active Substance: CELECOXIB
     Indication: PRODUCT USED FOR UNKNOWN INDICATION
  2. TRAMADOL. [Concomitant]
     Active Substance: TRAMADOL
     Indication: PAIN
  3. SALBUTAMOL [Concomitant]
     Active Substance: ALBUTEROL
     Indication: PRODUCT USED FOR UNKNOWN INDICATION
  4. HUMIRA [Suspect]
     Active Substance: ADALIMUMAB
     Indication: JUVENILE IDIOPATHIC ARTHRITIS
     Route: 058
     Dates: start: 20170408, end: 20170408
  5. REUMATEX [Concomitant]
     Indication: PRODUCT USED FOR UNKNOWN INDICATION
  6. HUMIRA [Suspect]
     Active Substance: ADALIMUMAB
     Route: 058
     Dates: start: 2017, end: 20170510

REACTIONS (1)
  - Asthmatic crisis [Recovered/Resolved]

NARRATIVE: CASE EVENT DATE: 20170428
